FAERS Safety Report 4963321-X (Version None)
Quarter: 2006Q2

REPORT INFORMATION
  Report Type: 
  Country: None (occurrence: None)
  Receive Date: 20060405
  Receipt Date: 20060220
  Transmission Date: 20061013
  Serious: Yes (Hospitalization)
  Sender: FDA-Public Use
  Company Number: PHBS2006FR02833

PATIENT
  Age: 59 Year
  Sex: Female

DRUGS (2)
  1. CYCLOSPORINE [Suspect]
     Indication: RENAL TRANSPLANT
     Dosage: 125 MG/D
     Route: 065
  2. PREDNISONE [Suspect]
     Indication: RENAL TRANSPLANT
     Dosage: 10 MG/D
     Route: 065

REACTIONS (20)
  - ACUTE PULMONARY OEDEMA [None]
  - C-REACTIVE PROTEIN INCREASED [None]
  - DRUG INTERACTION [None]
  - DYSPNOEA [None]
  - ERYSIPELAS [None]
  - HTLV-1 TEST POSITIVE [None]
  - HYPOXIA [None]
  - INFLAMMATION [None]
  - JOINT SWELLING [None]
  - LEUKOCYTOSIS [None]
  - LOCAL SWELLING [None]
  - LYMPHADENOPATHY [None]
  - MASS [None]
  - NODULE [None]
  - PHAEHYPHOMYCOSIS [None]
  - PSEUDOMONONUCLEOSIS [None]
  - PURULENT DISCHARGE [None]
  - PYREXIA [None]
  - SKIN LESION [None]
  - STAPHYLOCOCCAL BACTERAEMIA [None]
